FAERS Safety Report 4698472-0 (Version None)
Quarter: 2005Q2

REPORT INFORMATION
  Report Type: 
  Country: None (occurrence: None)
  Receive Date: 20050622
  Receipt Date: 20050609
  Transmission Date: 20051028
  Serious: Yes (Death)
  Sender: FDA-Public Use
  Company Number: 215284

PATIENT
  Age: 62 Year
  Sex: Female

DRUGS (3)
  1. AVASTIN [Suspect]
     Indication: SMALL CELL LUNG CANCER STAGE UNSPECIFIED
     Dosage: 15 MG/KG,  Q3W, INTRAVENOUS
     Route: 042
     Dates: start: 20050425, end: 20050516
  2. CISPLATIN [Concomitant]
  3. IRINOTECAN (IRINOTECAN HYDROCHLORIDE) [Concomitant]

REACTIONS (2)
  - HIATUS HERNIA [None]
  - NAUSEA [None]
